FAERS Safety Report 7995184-2 (Version None)
Quarter: 2011Q4

REPORT INFORMATION
  Report Type: 
  Country: None (occurrence: None)
  Receive Date: 20111220
  Receipt Date: 20111215
  Transmission Date: 20120403
  Serious: Yes (Other)
  Sender: FDA-Public Use
  Company Number: GB-B.I. PHARMACEUTICALS,INC./RIDGEFIELD-2011-UK-01374UK

PATIENT
  Age: 78 Year
  Sex: Female
  Weight: 56 kg

DRUGS (4)
  1. SIMVASTATIN [Concomitant]
     Dosage: 20 MG
     Route: 048
     Dates: start: 20000212
  2. LISINOPRIL [Concomitant]
     Dosage: 5 MG
     Route: 048
     Dates: start: 20000212
  3. PRADAXA [Suspect]
     Indication: ATRIAL FIBRILLATION
     Dosage: 110 MG
     Route: 048
     Dates: start: 20111024, end: 20111031
  4. BENDROFLUMETHIAZIDE [Concomitant]
     Dosage: 2.5 MG
     Route: 048
     Dates: start: 20000212

REACTIONS (3)
  - DYSPHAGIA [None]
  - CHEST PAIN [None]
  - OESOPHAGITIS [None]
